FAERS Safety Report 12747199 (Version 1)
Quarter: 2016Q3

REPORT INFORMATION
  Report Type: Spontaneous
  Country: US (occurrence: US)
  Receive Date: 20160915
  Receipt Date: 20160915
  Transmission Date: 20161109
  Serious: Yes (Hospitalization)
  Sender: FDA-Public Use
  Company Number: US-SAOL THERAPEUTICS-2016SAO00662

PATIENT
  Sex: Male

DRUGS (4)
  1. BACLOFEN. [Suspect]
     Active Substance: BACLOFEN
     Indication: MUSCLE SPASTICITY
     Dosage: 200 ?G, \DAY
     Route: 037
  2. BUPIVACAINE. [Suspect]
     Active Substance: BUPIVACAINE
     Indication: CEREBRAL PALSY
  3. BACLOFEN. [Suspect]
     Active Substance: BACLOFEN
     Indication: CEREBRAL PALSY
     Dosage: 190 ?G, \DAY
  4. BUPIVACAINE. [Suspect]
     Active Substance: BUPIVACAINE
     Indication: MUSCLE SPASTICITY
     Dosage: UNK UNK, \DAY

REACTIONS (7)
  - Malaise [Unknown]
  - Impaired healing [Unknown]
  - Implant site erosion [Unknown]
  - Implant site pain [Unknown]
  - Fatigue [Unknown]
  - Pruritus [Unknown]
  - Sepsis [Unknown]

NARRATIVE: CASE EVENT DATE: 2010
